FAERS Safety Report 5567722-0 (Version None)
Quarter: 2007Q4

REPORT INFORMATION
  Report Type: 
  Country: None (occurrence: None)
  Receive Date: 20071207
  Receipt Date: 20071126
  Transmission Date: 20080405
  Serious: Yes (Hospitalization, Other)
  Sender: FDA-Public Use
  Company Number: AECAN200700269

PATIENT
  Age: 8 Year
  Sex: Female
  Weight: 26 kg

DRUGS (7)
  1. GAMUNEX [Suspect]
     Indication: KAWASAKI'S DISEASE
     Dosage: 52.5 GM; IV
     Route: 042
     Dates: start: 20071108, end: 20071115
  2. GAMUNEX [Suspect]
     Route: 042
  3. GAMUNEX [Suspect]
     Route: 042
  4. IBUPROFEN [Concomitant]
  5. ASPIRIN [Concomitant]
  6. TYLENOL (CAPLET) [Concomitant]
  7. ASPIRIN                            /00346701/ [Concomitant]

REACTIONS (2)
  - HAEMOLYTIC ANAEMIA [None]
  - SYNCOPE VASOVAGAL [None]
